FAERS Safety Report 5476336-2 (Version None)
Quarter: 2007Q3

REPORT INFORMATION
  Report Type: 
  Country: None (occurrence: None)
  Receive Date: 20070914
  Receipt Date: 20070627
  Transmission Date: 20080115
  Serious: Yes (Other)
  Sender: FDA-Public Use
  Company Number: 07-188

PATIENT
  Age: 75 Year
  Sex: Female
  Weight: 73.4827 kg

DRUGS (4)
  1. ALEVE [Suspect]
     Dosage: DAILY, ORAL
     Route: 048
  2. FLONASE [Concomitant]
  3. ASPIRIN [Concomitant]
  4. ATIVAN [Concomitant]

REACTIONS (1)
  - HYPERTENSION [None]
